FAERS Safety Report 24656783 (Version 1)
Quarter: 2024Q4

REPORT INFORMATION
  Report Type: Spontaneous
  Country: ES (occurrence: ES)
  Receive Date: 20241125
  Receipt Date: 20241125
  Transmission Date: 20250115
  Serious: Yes (Hospitalization, Other)
  Sender: ABBVIE
  Company Number: None

PATIENT
  Age: 32 Year
  Sex: Female
  Weight: 100 kg

DRUGS (8)
  1. MESALAMINE [Suspect]
     Active Substance: MESALAMINE
     Indication: Colitis ulcerative
     Dosage: UNK
     Route: 054
     Dates: start: 200909
  2. AZATHIOPRINE SODIUM [Suspect]
     Active Substance: AZATHIOPRINE SODIUM
     Indication: Colitis ulcerative
     Dosage: DAILY DOSE: 1.0 DF
     Route: 065
  3. AZATHIOPRINE SODIUM [Suspect]
     Active Substance: AZATHIOPRINE SODIUM
     Indication: Colitis ulcerative
     Dosage: DAILY DOSE: 4.0 DF
     Route: 065
     Dates: start: 201006
  4. AZATHIOPRINE SODIUM [Suspect]
     Active Substance: AZATHIOPRINE SODIUM
     Indication: Colitis ulcerative
     Dosage: DAILY DOSE: 1.0 DF, FREQUENCY: EVERY MORNING
     Route: 065
     Dates: start: 200903
  5. PENTASA [Suspect]
     Active Substance: MESALAMINE
     Indication: Colitis ulcerative
     Dosage: DOSE DESC: UNK
     Route: 054
     Dates: start: 200710, end: 200909
  6. LYRICA [Suspect]
     Active Substance: PREGABALIN
     Indication: Back pain
     Dosage: DOSE DESC: UNK
     Route: 065
  7. BECLOMETHASONE DIPROPIONATE [Suspect]
     Active Substance: BECLOMETHASONE DIPROPIONATE
     Indication: Colitis ulcerative
     Dosage: DOSE DESC: UNK
     Route: 065
  8. DIETARY SUPPLEMENT [Concomitant]
     Active Substance: DIETARY SUPPLEMENT
     Indication: Product used for unknown indication
     Route: 065

REACTIONS (6)
  - Haemolytic uraemic syndrome [Unknown]
  - Thrombocytopenic purpura [Unknown]
  - Hypertension [Unknown]
  - Weight increased [Unknown]
  - Pancreatitis acute [Unknown]
  - Colitis ulcerative [Unknown]

NARRATIVE: CASE EVENT DATE: 20100601
